FAERS Safety Report 6011684-9 (Version None)
Quarter: 2008Q4

REPORT INFORMATION
  Report Type: 
  Country: None (occurrence: None)
  Receive Date: 20081218
  Receipt Date: 19870106
  Transmission Date: 20090506
  Serious: Yes (Death, Other)
  Sender: FDA-Public Use
  Company Number: AU-ROCHE-860150417001

PATIENT
  Age: 51 Year
  Sex: Male
  Weight: 70 kg

DRUGS (4)
  1. INTERFERON ALFA-2A [Suspect]
     Indication: MULTIPLE MYELOMA
     Route: 058
     Dates: start: 19840328, end: 19840427
  2. INTERFERON ALFA-2A [Suspect]
     Route: 058
     Dates: end: 19840516
  3. NITRAZEPAM [Concomitant]
     Route: 048
  4. PALFIUM [Concomitant]
     Route: 048

REACTIONS (2)
  - DISEASE PROGRESSION [None]
  - PANCYTOPENIA [None]
